FAERS Safety Report 5991409-3 (Version None)
Quarter: 2008Q4

REPORT INFORMATION
  Report Type: 
  Country: None (occurrence: None)
  Receive Date: 20081211
  Receipt Date: 20081203
  Transmission Date: 20090506
  Serious: Yes (Other)
  Sender: FDA-Public Use
  Company Number: GB-ROCHE-591343

PATIENT
  Sex: Female
  Weight: 95.3 kg

DRUGS (4)
  1. ORLISTAT [Suspect]
     Indication: OBESITY
     Route: 048
     Dates: start: 20080122, end: 20081001
  2. DIHYDROCODEINE BITARTRATE INJ [Concomitant]
     Indication: BACK PAIN
     Route: 048
  3. ACETAMINOPHEN W/ CODEINE [Concomitant]
     Indication: PAIN
     Route: 048
  4. ACETAMINOPHEN [Concomitant]
     Indication: PAIN
     Dosage: REOPRTED AS OCCASIONAL USE
     Route: 048

REACTIONS (4)
  - ALOPECIA [None]
  - HOT FLUSH [None]
  - NON-HODGKIN'S LYMPHOMA [None]
  - PRURITUS [None]
